FAERS Safety Report 4597529-2 (Version None)
Quarter: 2005Q1

REPORT INFORMATION
  Report Type: 
  Country: None (occurrence: None)
  Receive Date: 20050228
  Receipt Date: 20050228
  Transmission Date: 20050727
  Serious: No
  Sender: FDA-Public Use
  Company Number: None

PATIENT
  Age: 80 Year
  Sex: Male
  Weight: 81 kg

DRUGS (1)
  1. LOVENOX [Suspect]
     Indication: HIP FRACTURE
     Dosage: 30 MG SQ Q12H
     Route: 058
     Dates: start: 20041116, end: 20050103

REACTIONS (1)
  - HAEMATURIA [None]
